FAERS Safety Report 6023592-8 (Version None)
Quarter: 2008Q4

REPORT INFORMATION
  Report Type: 
  Country: None (occurrence: None)
  Receive Date: 20081226
  Receipt Date: 20081226
  Transmission Date: 20090506
  Serious: Yes (Hospitalization, Other)
  Sender: FDA-Public Use
  Company Number: None

PATIENT
  Age: 63 Year
  Sex: Female

DRUGS (1)
  1. ALLOPURINOL [Suspect]
     Indication: GOUT
     Dosage: ONE TABLET DAILY PO
     Route: 048
     Dates: start: 20081206, end: 20081218

REACTIONS (3)
  - DRUG HYPERSENSITIVITY [None]
  - DRUG INTERACTION [None]
  - STEVENS-JOHNSON SYNDROME [None]
